FAERS Safety Report 10285944 (Version 1)
Quarter: 2014Q3

REPORT INFORMATION
  Report Type: Spontaneous
  Country: US (occurrence: None)
  Receive Date: 20140703
  Receipt Date: 20140703
  Transmission Date: 20150326
  Serious: Yes (Death, Life-Threatening, Hospitalization)
  Sender: FDA-Public Use
  Company Number: AXC-2014-000397

PATIENT
  Age: 70 Year
  Sex: Female

DRUGS (2)
  1. POTASSIUM CHLORIDE (POTASSIUM CHLORIDE) UNKNOWN [Suspect]
     Active Substance: POTASSIUM CHLORIDE
     Indication: HYPOKALAEMIA
     Route: 048
  2. POTASSIUM CHLORIDE (POTASSIUM CHLORIDE) INFUSION [Suspect]
     Active Substance: POTASSIUM CHLORIDE
     Indication: HYPOKALAEMIA
     Route: 042

REACTIONS (8)
  - Haemoglobin decreased [None]
  - White blood cell count decreased [None]
  - Thrombocytopenia [None]
  - Malignant neoplasm progression [None]
  - Hypokalaemia [None]
  - Small cell lung cancer metastatic [None]
  - No therapeutic response [None]
  - Blood glucose increased [None]
